FAERS Safety Report 23581221 (Version 1)
Quarter: 2024Q1

REPORT INFORMATION
  Report Type: Spontaneous
  Country: TH (occurrence: TH)
  Receive Date: 20240229
  Receipt Date: 20240229
  Transmission Date: 20240409
  Serious: Yes (Other)
  Sender: FDA-Public Use
  Company Number: TH-FreseniusKabi-FK202403134

PATIENT
  Age: 38 Year

DRUGS (2)
  1. CARBOPLATIN [Suspect]
     Active Substance: CARBOPLATIN
     Indication: Ovarian cancer
     Dosage: AT DAY 7,9,10 AFTER RECEIVING KEMOCARB?150MG15ML ?304 VIALS
  2. CARBOPLATIN [Suspect]
     Active Substance: CARBOPLATIN
     Dosage: AT DAY 7,9,10 AFTER RECEIVING KEMOCARB?450 MG 45 ML?204 VIALS

REACTIONS (1)
  - Erythema multiforme [Unknown]
